FAERS Safety Report 9079891 (Version 1)
Quarter: 2013Q1

REPORT INFORMATION
  Report Type: Spontaneous
  Country: US (occurrence: US)
  Receive Date: 20130130
  Receipt Date: 20130130
  Transmission Date: 20140127
  Serious: No
  Sender: FDA-Public Use
  Company Number: US-VERTEX PHARMACEUTICALS INC.-2013-001352

PATIENT
  Age: 14 Year
  Sex: Female

DRUGS (2)
  1. KALYDECO [Suspect]
     Indication: CYSTIC FIBROSIS
     Dosage: UNK
     Route: 048
     Dates: start: 201204
  2. KALYDECO [Suspect]
     Dosage: UNK
     Route: 048
     Dates: start: 20120720

REACTIONS (1)
  - Off label use [Recovered/Resolved]
